FAERS Safety Report 6876072-1 (Version None)
Quarter: 2010Q2

REPORT INFORMATION
  Report Type: 
  Country: None (occurrence: None)
  Receive Date: 20100616
  Receipt Date: 20100405
  Transmission Date: 20101027
  Serious: No
  Sender: FDA-Public Use
  Company Number: DSA_42895_2010

PATIENT
  Sex: Female

DRUGS (7)
  1. XENAZINE [Suspect]
     Indication: TARDIVE DYSKINESIA
     Dosage: (12.5 MG QD ORAL)
     Route: 048
     Dates: start: 20100401
  2. PAXIL CR [Concomitant]
  3. LORTAB [Concomitant]
  4. LIPITOR [Concomitant]
  5. POTASSIUM [Concomitant]
  6. PRILOSEC [Concomitant]
  7. LOZOL [Concomitant]

REACTIONS (3)
  - DIARRHOEA [None]
  - NAUSEA [None]
  - SOMNOLENCE [None]
